FAERS Safety Report 5801225-0 (Version None)
Quarter: 2008Q3

REPORT INFORMATION
  Report Type: 
  Country: None (occurrence: None)
  Receive Date: 20080707
  Receipt Date: 20080702
  Transmission Date: 20090109
  Serious: Yes (Other)
  Sender: FDA-Public Use
  Company Number: GB-SP-2008-02173

PATIENT
  Age: 72 Year
  Sex: Male

DRUGS (2)
  1. IMMUCYST [Suspect]
     Indication: BLADDER CANCER
     Route: 043
     Dates: start: 20080327
  2. IMMUCYST [Suspect]
     Route: 043
     Dates: start: 20080327

REACTIONS (3)
  - MALE GENITAL TRACT TUBERCULOSIS [None]
  - ORCHITIS [None]
  - PENILE SWELLING [None]
